FAERS Safety Report 12210174 (Version 1)
Quarter: 2016Q1

REPORT INFORMATION
  Report Type: Spontaneous
  Country: US (occurrence: None)
  Receive Date: 20160324
  Receipt Date: 20160324
  Transmission Date: 20160526
  Serious: Yes (Other)
  Sender: FDA-Public Use
  Company Number: None

PATIENT
  Age: 33 Year
  Sex: Female
  Weight: 58.97 kg

DRUGS (3)
  1. INTRAMAX LIQUID VITAMIN [Concomitant]
  2. ZYRTEC [Suspect]
     Active Substance: CETIRIZINE HYDROCHLORIDE
     Indication: MULTIPLE ALLERGIES
     Route: 048
  3. CETIRIZINE [Concomitant]
     Active Substance: CETIRIZINE HYDROCHLORIDE

REACTIONS (16)
  - Nausea [None]
  - Dry mouth [None]
  - Alopecia [None]
  - Contusion [None]
  - Muscular weakness [None]
  - Impaired driving ability [None]
  - Pain [None]
  - Scar [None]
  - Impaired work ability [None]
  - Dry eye [None]
  - Haemorrhagic urticaria [None]
  - Headache [None]
  - Pruritus [None]
  - Nightmare [None]
  - Drug withdrawal syndrome [None]
  - No therapeutic response [None]

NARRATIVE: CASE EVENT DATE: 20160321
